FAERS Safety Report 8078269-4 (Version None)
Quarter: 2012Q1

REPORT INFORMATION
  Report Type: 
  Country: None (occurrence: None)
  Receive Date: 20120123
  Receipt Date: 20120109
  Transmission Date: 20120608
  Serious: Yes (Hospitalization, Other)
  Sender: FDA-Public Use
  Company Number: 2012MA000441

PATIENT
  Sex: Male
  Weight: 75.2971 kg

DRUGS (17)
  1. ALDACTONE [Concomitant]
  2. ASPIRIN [Concomitant]
  3. COUMADIN [Concomitant]
  4. IMDUR [Concomitant]
  5. VYTORIN [Concomitant]
  6. AMBIEN [Concomitant]
  7. LASIX [Concomitant]
  8. LISINOPRIL [Concomitant]
  9. MINOCYCLINE HCL [Concomitant]
  10. REGLAN [Concomitant]
  11. TOPROL-XL [Concomitant]
  12. POTASSIUM CHLORIDE [Concomitant]
  13. XANAX [Concomitant]
  14. DIGOXIN [Suspect]
     Indication: PRODUCT USED FOR UNKNOWN INDICATION
     Dosage: 0.125 MG;QD;PO
     Route: 048
     Dates: start: 20060729, end: 20091217
  15. LEVOTHYROXINE SODIUM [Concomitant]
  16. PRINIVIL [Concomitant]
  17. RANITIDINE [Concomitant]

REACTIONS (24)
  - CARDIAC FAILURE CONGESTIVE [None]
  - ARTHRALGIA [None]
  - INCISION SITE HAEMORRHAGE [None]
  - CHEST PAIN [None]
  - ATRIAL FIBRILLATION [None]
  - ATAXIA [None]
  - GOUT [None]
  - EXTRASYSTOLES [None]
  - BUNDLE BRANCH BLOCK RIGHT [None]
  - CARDIOMEGALY [None]
  - ABDOMINAL DISCOMFORT [None]
  - ISCHAEMIC CARDIOMYOPATHY [None]
  - VENTRICULAR EXTRASYSTOLES [None]
  - CARDIAC MURMUR [None]
  - COUGH [None]
  - BALANCE DISORDER [None]
  - INCREASED TENDENCY TO BRUISE [None]
  - ARRHYTHMIA SUPRAVENTRICULAR [None]
  - GALLOP RHYTHM PRESENT [None]
  - LEFT VENTRICULAR HYPERTROPHY [None]
  - ATELECTASIS [None]
  - BUNDLE BRANCH BLOCK LEFT [None]
  - TEMPERATURE INTOLERANCE [None]
  - PYREXIA [None]
